FAERS Safety Report 14419154 (Version 2)
Quarter: 2018Q2

REPORT INFORMATION
  Report Type: Spontaneous
  Country: US (occurrence: US)
  Receive Date: 20180122
  Receipt Date: 20180417
  Transmission Date: 20180711
  Serious: No
  Sender: FDA-Public Use
  Company Number: US-NEUROCRINE BIOSCIENCES INC.-2017NBI01609

PATIENT
  Age: 26 Year
  Sex: Male

DRUGS (4)
  1. TRIHEXYPHENIDYL [Concomitant]
     Active Substance: TRIHEXYPHENIDYL
  2. NUEDEXTA [Suspect]
     Active Substance: DEXTROMETHORPHAN HYDROBROMIDE\QUINIDINE SULFATE
     Indication: PRODUCT USED FOR UNKNOWN INDICATION
  3. ARTANE [Concomitant]
     Active Substance: TRIHEXYPHENIDYL HYDROCHLORIDE
  4. INGREZZA [Suspect]
     Active Substance: VALBENAZINE
     Indication: TARDIVE DYSKINESIA
     Route: 048
     Dates: start: 20171130

REACTIONS (10)
  - Pyrexia [Unknown]
  - Dyskinesia [Unknown]
  - Vomiting [Unknown]
  - Tardive dyskinesia [Unknown]
  - Anxiety [Unknown]
  - Pain in jaw [Unknown]
  - Drug interaction [Unknown]
  - Discomfort [Unknown]
  - Tunnel vision [Unknown]
  - Headache [Unknown]

NARRATIVE: CASE EVENT DATE: 2017
